FAERS Safety Report 18263821 (Version 1)
Quarter: 2020Q3

REPORT INFORMATION
  Report Type: Spontaneous
  Country: US (occurrence: US)
  Receive Date: 20200914
  Receipt Date: 20200914
  Transmission Date: 20201103
  Serious: Yes (Other)
  Sender: FDA-Public Use
  Company Number: US-AMERICAN REGENT INC-2020001869

PATIENT
  Age: 34 Year
  Sex: Female

DRUGS (15)
  1. METHOCARBAMOL INJECTION (0517?1825?01) [Concomitant]
     Active Substance: METHOCARBAMOL
     Indication: TRIGEMINAL NEURALGIA
     Dosage: 1000 MILLIGRAM EVERY 4 HOURS
     Route: 065
  2. GABAPENTIN. [Concomitant]
     Active Substance: GABAPENTIN
     Indication: TRIGEMINAL NEURALGIA
     Dosage: UNK
     Route: 048
  3. FOSPHENYTOIN SODIUM INJECTION, USP (025?21) [Concomitant]
     Active Substance: FOSPHENYTOIN SODIUM
     Dosage: 1000 MILLIGRAM
     Route: 065
  4. LEVETIRACETAM INJECTION (0517?3605?01) [Concomitant]
     Active Substance: LEVETIRACETAM
     Dosage: 2000 MILLIGRAM, BID
     Route: 042
  5. KETAMINE [Suspect]
     Active Substance: KETAMINE
     Indication: TRIGEMINAL NEURALGIA
     Dosage: UNK
  6. LEVETIRACETAM INJECTION (0517?3605?01) [Concomitant]
     Active Substance: LEVETIRACETAM
     Indication: TRIGEMINAL NEURALGIA
     Dosage: 1000 MILLIGRAM, BID
     Route: 042
  7. LIDOCAINE HCL INJECTION, USP (0625?25) [Suspect]
     Active Substance: LIDOCAINE HYDROCHLORIDE
     Indication: TRIGEMINAL NEURALGIA
     Dosage: UNK
  8. DILAUDID [Suspect]
     Active Substance: HYDROMORPHONE HYDROCHLORIDE
     Indication: TRIGEMINAL NEURALGIA
     Dosage: UNK
     Route: 042
  9. CARBAMAZEPINE. [Concomitant]
     Active Substance: CARBAMAZEPINE
     Indication: TRIGEMINAL NEURALGIA
     Dosage: 300 MILLIGRAM, BID
     Route: 065
  10. PHENYTOIN SODIUM INJECTION (40042?009?02) [Suspect]
     Active Substance: PHENYTOIN SODIUM
     Indication: TRIGEMINAL NEURALGIA
     Dosage: 250 MILLIGRAM, ONCE
     Route: 065
  11. LEVETIRACETAM INJECTION (0517?3605?01) [Concomitant]
     Active Substance: LEVETIRACETAM
     Dosage: UNK
     Route: 065
  12. KETOROLAC TROMETHAMINE INJECTION, USP (0601?25) [Suspect]
     Active Substance: KETOROLAC TROMETHAMINE
     Indication: TRIGEMINAL NEURALGIA
     Dosage: 15 MILLIGRAM, PRN EVERY 8 HOURS
     Route: 065
  13. METHYLPREDNISOLONE. [Suspect]
     Active Substance: METHYLPREDNISOLONE
     Indication: TRIGEMINAL NEURALGIA
     Dosage: 1 GRAM, ONCE
     Route: 065
  14. FOSPHENYTOIN SODIUM INJECTION, USP (025?21) [Concomitant]
     Active Substance: FOSPHENYTOIN SODIUM
     Indication: TRIGEMINAL NEURALGIA
     Dosage: 700 MILLIGRAM
     Route: 065
  15. CARBAMAZEPINE. [Concomitant]
     Active Substance: CARBAMAZEPINE
     Dosage: UNK
     Route: 048

REACTIONS (5)
  - Trigeminal neuralgia [Recovered/Resolved]
  - Hallucination [Unknown]
  - Drug ineffective for unapproved indication [Recovered/Resolved]
  - Ill-defined disorder [Unknown]
  - Product use in unapproved indication [Unknown]
